FAERS Safety Report 9107094 (Version 1)
Quarter: 2013Q1

REPORT INFORMATION
  Report Type: Spontaneous
  Country: CH (occurrence: CH)
  Receive Date: 20130221
  Receipt Date: 20130221
  Transmission Date: 20140127
  Serious: Yes (Hospitalization)
  Sender: FDA-Public Use
  Company Number: CH-BAYER-2013-022573

PATIENT
  Age: 55 Year
  Sex: Male
  Weight: 100 kg

DRUGS (5)
  1. ASPIRIN CARDIO [Suspect]
     Indication: ACUTE MYOCARDIAL INFARCTION
     Dosage: 100 MG, QD
     Route: 048
     Dates: start: 20120306
  2. PRASUGREL [Interacting]
     Indication: ACUTE MYOCARDIAL INFARCTION
     Dosage: 10 MG, QD
     Route: 048
     Dates: start: 20120307, end: 20130131
  3. BELOC [Concomitant]
     Dosage: 25 MG, QD
     Route: 048
     Dates: start: 2012
  4. SORTIS [Concomitant]
     Dosage: 40 MG, QD
     Dates: start: 20120416
  5. LISINOPRIL [Concomitant]
     Dosage: 20 MG, QD
     Dates: start: 20120416

REACTIONS (5)
  - Anaemia [Recovering/Resolving]
  - Gastric ulcer haemorrhage [Unknown]
  - Myocardial ischaemia [Recovered/Resolved]
  - Melaena [Unknown]
  - Asthenia [Unknown]
